FAERS Safety Report 18900981 (Version 1)
Quarter: 2021Q1

REPORT INFORMATION
  Report Type: Spontaneous
  Country: GB (occurrence: GB)
  Receive Date: 20210217
  Receipt Date: 20210217
  Transmission Date: 20210420
  Serious: Yes (Other)
  Sender: FDA-Public Use
  Company Number: GB-SUN PHARMACEUTICAL INDUSTRIES LTD-2021R1-280068

PATIENT
  Age: 46 Year
  Sex: Female

DRUGS (2)
  1. CLOZAPINE. [Suspect]
     Active Substance: CLOZAPINE
     Dosage: TO COMMENCE CLOZAPINE AGAIN
     Route: 065
     Dates: start: 201802
  2. CLOZAPINE. [Suspect]
     Active Substance: CLOZAPINE
     Indication: SCHIZOPHRENIA
     Dosage: IT WAS DISCONTINUED AFTER 3 MONTHS ON TREATMENT
     Route: 065
     Dates: start: 200006

REACTIONS (1)
  - Neutropenia [Recovered/Resolved]
